FAERS Safety Report 11171421 (Version 3)
Quarter: 2015Q2

REPORT INFORMATION
  Report Type: Spontaneous
  Country: US (occurrence: US)
  Receive Date: 20150608
  Receipt Date: 20150612
  Transmission Date: 20150821
  Serious: No
  Sender: FDA-Public Use
  Company Number: US-PFIZER INC-2015187414

PATIENT
  Age: 89 Year
  Sex: Male
  Weight: 69 kg

DRUGS (5)
  1. AMLODIPINE BESILATE [Suspect]
     Active Substance: AMLODIPINE BESYLATE
     Dosage: 5 MG, UNK (TWO 5 MG )
  2. ATIVAN [Concomitant]
     Active Substance: LORAZEPAM
     Indication: ANXIETY
     Dosage: 1 MG, UNK (ONE OR MAXIMUM TWO)
  3. OMEGA 3 [Concomitant]
     Active Substance: OMEGA-3 FATTY ACIDS
     Dosage: UNK
  4. AMLODIPINE BESILATE [Suspect]
     Active Substance: AMLODIPINE BESYLATE
     Dosage: 10 MG, 2X/DAY
  5. VITEYES [Concomitant]
     Indication: MACULAR DEGENERATION
     Dosage: UNK

REACTIONS (9)
  - Fatigue [Unknown]
  - Somnolence [Unknown]
  - Heart rate irregular [Unknown]
  - Dizziness [Unknown]
  - Flushing [Unknown]
  - Abdominal pain upper [Unknown]
  - Oedema peripheral [Unknown]
  - Nausea [Unknown]
  - Agitation [Unknown]
